FAERS Safety Report 5447874-3 (Version None)
Quarter: 2007Q3

REPORT INFORMATION
  Report Type: 
  Country: None (occurrence: None)
  Receive Date: 20070910
  Receipt Date: 20070828
  Transmission Date: 20080115
  Serious: Yes (Hospitalization)
  Sender: FDA-Public Use
  Company Number: US-SHR-US-2007-032401

PATIENT
  Sex: Male

DRUGS (1)
  1. BETASERON [Suspect]
     Route: 058
     Dates: start: 20050101

REACTIONS (3)
  - ERYTHEMA MULTIFORME [None]
  - INJECTION SITE PRURITUS [None]
  - INJECTION SITE RASH [None]
